FAERS Safety Report 20148183 (Version 1)
Quarter: 2021Q4

REPORT INFORMATION
  Report Type: Report from Study
  Country: US (occurrence: US)
  Receive Date: 20211204
  Receipt Date: 20211204
  Transmission Date: 20220303
  Serious: No
  Sender: FDA-Public Use
  Company Number: US-NOVARTISTESTPH-NVSC2021US275786

PATIENT
  Sex: Female

DRUGS (1)
  1. PROMACTA [Suspect]
     Active Substance: ELTROMBOPAG OLAMINE
     Indication: Product used for unknown indication
     Dosage: 150 MG, QD
     Route: 048

REACTIONS (6)
  - Myalgia [Unknown]
  - Melanocytic naevus [Unknown]
  - Skin discolouration [Unknown]
  - Muscle spasms [Unknown]
  - Dizziness [Unknown]
  - Arthralgia [Unknown]
